FAERS Safety Report 9129902 (Version 1)
Quarter: 2013Q1

REPORT INFORMATION
  Report Type: Spontaneous
  Country: IR (occurrence: IR)
  Receive Date: 20130228
  Receipt Date: 20130228
  Transmission Date: 20140127
  Serious: Yes (Hospitalization)
  Sender: FDA-Public Use
  Company Number: PHHY2013IR019538

PATIENT
  Age: 19 Year
  Sex: Male

DRUGS (1)
  1. TRAMADOL [Suspect]
     Dosage: 4000 MG, UNK
     Route: 048

REACTIONS (4)
  - Cyanosis [Unknown]
  - Poisoning deliberate [Unknown]
  - Apnoea [Unknown]
  - Toxicity to various agents [Unknown]
